FAERS Safety Report 22020283 (Version 1)
Quarter: 2023Q1

REPORT INFORMATION
  Report Type: Spontaneous
  Country: CA (occurrence: CA)
  Receive Date: 20230222
  Receipt Date: 20230222
  Transmission Date: 20230417
  Serious: Yes (Hospitalization, Other)
  Sender: FDA-Public Use
  Company Number: CA-002147023-NVSC2023CA035006

PATIENT
  Age: 83 Year
  Sex: Male

DRUGS (7)
  1. MOMETASONE [Suspect]
     Active Substance: MOMETASONE
     Indication: Product used for unknown indication
     Dosage: UNK
     Route: 065
  2. ASPIRIN [Suspect]
     Active Substance: ASPIRIN
     Indication: Product used for unknown indication
     Dosage: UNK
     Route: 065
  3. MOMETASONE FUROATE [Suspect]
     Active Substance: MOMETASONE FUROATE
     Indication: Product used for unknown indication
     Dosage: UNK
     Route: 065
  4. FLUTICASONE FUROATE [Suspect]
     Active Substance: FLUTICASONE FUROATE
     Indication: Product used for unknown indication
     Dosage: UNK
     Route: 065
  5. MEPOLIZUMAB [Suspect]
     Active Substance: MEPOLIZUMAB
     Indication: Asthma
     Dosage: 100 MG
     Route: 042
  6. MEPOLIZUMAB [Suspect]
     Active Substance: MEPOLIZUMAB
     Dosage: 100 MG
     Route: 042
  7. ALBUTEROL SULFATE [Suspect]
     Active Substance: ALBUTEROL SULFATE
     Indication: Product used for unknown indication
     Dosage: UNK
     Route: 065

REACTIONS (20)
  - Cerebral disorder [Unknown]
  - Cerebrovascular accident [Unknown]
  - Cerebral mass effect [Unknown]
  - Cerebral thrombosis [Unknown]
  - Chest pain [Unknown]
  - Dementia Alzheimer^s type [Unknown]
  - Drug hypersensitivity [Unknown]
  - Fall [Unknown]
  - Subdural haematoma [Unknown]
  - Gait disturbance [Unknown]
  - Lacunar infarction [Unknown]
  - Mental disorder [Unknown]
  - Mucosal hypertrophy [Unknown]
  - Muscular weakness [Unknown]
  - Paranoia [Unknown]
  - Pneumocephalus [Unknown]
  - Primary familial brain calcification [Unknown]
  - Sinus disorder [Unknown]
  - Soft tissue swelling [Unknown]
  - Speech disorder [Unknown]
